FAERS Safety Report 8496929-8 (Version None)
Quarter: 2012Q3

REPORT INFORMATION
  Report Type: 
  Country: None (occurrence: None)
  Receive Date: 20120709
  Receipt Date: 20120626
  Transmission Date: 20120928
  Serious: Yes (Hospitalization, Other)
  Sender: FDA-Public Use
  Company Number: US-ELI_LILLY_AND_COMPANY-US201205008789

PATIENT
  Sex: Female

DRUGS (1)
  1. FORTEO [Suspect]
     Indication: OSTEOPOROSIS
     Dosage: 20 UG, QD
     Dates: start: 20110701

REACTIONS (6)
  - SPINAL NERVE STIMULATOR IMPLANTATION [None]
  - PNEUMONIA [None]
  - CEREBROVASCULAR ACCIDENT [None]
  - BACK PAIN [None]
  - DEVICE MALFUNCTION [None]
  - ABDOMINAL PAIN UPPER [None]
